FAERS Safety Report 8425650-7 (Version None)
Quarter: 2012Q2

REPORT INFORMATION
  Report Type: 
  Country: None (occurrence: None)
  Receive Date: 20120611
  Receipt Date: 20120604
  Transmission Date: 20120825
  Serious: Yes (Other)
  Sender: FDA-Public Use
  Company Number: PHHY2012BR048419

PATIENT
  Sex: Male

DRUGS (2)
  1. DIOVAN [Suspect]
     Indication: HYPERTENSION
     Dosage: 320 MG, (1 TABLET A DAY)
  2. DIOVAN [Suspect]
     Dosage: 320 MG, QOD

REACTIONS (10)
  - PARKINSON'S DISEASE [None]
  - APHAGIA [None]
  - CEREBROVASCULAR ACCIDENT [None]
  - SPEECH DISORDER [None]
  - DEMENTIA ALZHEIMER'S TYPE [None]
  - BLOOD PRESSURE INCREASED [None]
  - INFARCTION [None]
  - TREMOR [None]
  - MUSCULOSKELETAL STIFFNESS [None]
  - MALAISE [None]
